FAERS Safety Report 12770193 (Version 1)
Quarter: 2016Q3

REPORT INFORMATION
  Report Type: Spontaneous
  Country: US (occurrence: US)
  Receive Date: 20160922
  Receipt Date: 20160922
  Transmission Date: 20161109
  Serious: No
  Sender: FDA-Public Use
  Company Number: US-PFIZER INC-2016441481

PATIENT
  Sex: Female

DRUGS (11)
  1. PROVERA [Suspect]
     Active Substance: MEDROXYPROGESTERONE ACETATE
  2. DOXYCYCLINE HYCLATE. [Suspect]
     Active Substance: DOXYCYCLINE HYCLATE
  3. CLINDAMYCIN HCL [Suspect]
     Active Substance: CLINDAMYCIN HYDROCHLORIDE
  4. TYLENOL [Suspect]
     Active Substance: ACETAMINOPHEN
  5. DEMEROL [Suspect]
     Active Substance: MEPERIDINE HYDROCHLORIDE
  6. ESTRADIOL. [Suspect]
     Active Substance: ESTRADIOL
  7. IBUPROFEN. [Suspect]
     Active Substance: IBUPROFEN
  8. PREDNISONE. [Suspect]
     Active Substance: PREDNISONE
  9. SULFUR. [Suspect]
     Active Substance: SULFUR
  10. FLU VACCINE [Suspect]
     Active Substance: INFLUENZA VIRUS VACCINE
     Indication: IMMUNISATION
  11. CODEINE [Suspect]
     Active Substance: CODEINE

REACTIONS (1)
  - Drug hypersensitivity [Unknown]
